FAERS Safety Report 7586444-8 (Version None)
Quarter: 2011Q3

REPORT INFORMATION
  Report Type: 
  Country: None (occurrence: None)
  Receive Date: 20110701
  Receipt Date: 20110623
  Transmission Date: 20111222
  Serious: Yes (Hospitalization)
  Sender: FDA-Public Use
  Company Number: B0729931A

PATIENT
  Age: 74 Year
  Sex: Male

DRUGS (1)
  1. DUTASTERIDE/TAMSULIN HYDROCHLORIDE [Suspect]
     Route: 065

REACTIONS (3)
  - PARKINSON'S DISEASE [None]
  - MOBILITY DECREASED [None]
  - MUSCULOSKELETAL STIFFNESS [None]
